FAERS Safety Report 7240640-8 (Version None)
Quarter: 2011Q1

REPORT INFORMATION
  Report Type: 
  Country: None (occurrence: None)
  Receive Date: 20110124
  Receipt Date: 20100830
  Transmission Date: 20110831
  Serious: No
  Sender: FDA-Public Use
  Company Number: US-KINGPHARMUSA00001-K201001095

PATIENT
  Sex: Female
  Weight: 63.492 kg

DRUGS (7)
  1. LAMOTRIGINE [Concomitant]
     Indication: MIGRAINE
     Dosage: UNK
  2. LITHIUM [Concomitant]
     Indication: MIGRAINE
     Dosage: UNK
  3. FLUOXETINE [Concomitant]
     Indication: MIGRAINE
     Dosage: UNK
  4. EPIPEN [Suspect]
     Indication: HYPERSENSITIVITY
     Dosage: 0.3 MG, SINGLE
     Route: 030
  5. BUPROPION [Concomitant]
     Indication: MIGRAINE
     Dosage: UNK
  6. EPIPEN [Suspect]
     Indication: ALLERGY TO STING
  7. EPIPEN JR. [Suspect]
     Dosage: 0.15 MG, TWICE
     Route: 030
     Dates: start: 20100819, end: 20100819

REACTIONS (2)
  - FATIGUE [None]
  - DIZZINESS [None]
